FAERS Safety Report 20571272 (Version 1)
Quarter: 2022Q1

REPORT INFORMATION
  Report Type: Spontaneous
  Country: US (occurrence: US)
  Receive Date: 20220309
  Receipt Date: 20220309
  Transmission Date: 20220423
  Serious: Yes (Hospitalization)
  Sender: FDA-Public Use
  Company Number: US-CELGENE-USA-20220302072

PATIENT
  Age: 66 Year
  Sex: Female
  Weight: 134.38 kg

DRUGS (2)
  1. THALOMID [Suspect]
     Active Substance: THALIDOMIDE
     Indication: Myelofibrosis
     Dosage: 100 MILLIGRAM
     Route: 048
     Dates: start: 202201
  2. THALOMID [Suspect]
     Active Substance: THALIDOMIDE
     Indication: Off label use

REACTIONS (1)
  - Dyspnoea [Recovered/Resolved]

NARRATIVE: CASE EVENT DATE: 20220215
